FAERS Safety Report 18209496 (Version 1)
Quarter: 2020Q3

REPORT INFORMATION
  Report Type: Spontaneous
  Country: US (occurrence: US)
  Receive Date: 20200828
  Receipt Date: 20200828
  Transmission Date: 20201103
  Serious: Yes (Other)
  Sender: FDA-Public Use
  Company Number: US-009507513-2008USA012690

PATIENT
  Sex: Female

DRUGS (6)
  1. SINGULAIR [Suspect]
     Active Substance: MONTELUKAST SODIUM
     Indication: MULTIPLE ALLERGIES
     Dosage: UNK
     Route: 048
  2. OFEV [Suspect]
     Active Substance: NINTEDANIB
     Dosage: 150 MG, 2 IN 1 D
     Route: 048
  3. OFEV [Suspect]
     Active Substance: NINTEDANIB
     Dosage: 150 MG, 2 IN 1 D
     Route: 048
  4. OFEV [Suspect]
     Active Substance: NINTEDANIB
     Dosage: 150 MG, 2 IN 1 D
     Route: 048
  5. OFEV [Suspect]
     Active Substance: NINTEDANIB
     Indication: IDIOPATHIC PULMONARY FIBROSIS
     Dosage: 150 MG, 2 IN 1 D
     Route: 048
     Dates: start: 20190426
  6. OFEV [Suspect]
     Active Substance: NINTEDANIB
     Dosage: 150 MG, 2 IN 1 D
     Route: 048

REACTIONS (8)
  - Productive cough [Unknown]
  - Lung cyst [Unknown]
  - Cyst [Unknown]
  - Bronchospasm [Unknown]
  - Multiple allergies [Unknown]
  - Bronchitis [Unknown]
  - Dyspnoea exertional [Unknown]
  - Oropharyngeal pain [Unknown]
